FAERS Safety Report 17719428 (Version 1)
Quarter: 2020Q2

REPORT INFORMATION
  Report Type: Spontaneous
  Country: US (occurrence: US)
  Receive Date: 20200428
  Receipt Date: 20200428
  Transmission Date: 20200714
  Serious: No
  Sender: FDA-Public Use
  Company Number: US-BIOGEN-2015BI151432

PATIENT
  Age: 36 Year
  Sex: Female

DRUGS (1)
  1. PLEGRIDY [Suspect]
     Active Substance: PEGINTERFERON BETA-1A
     Indication: MULTIPLE SCLEROSIS
     Route: 065
     Dates: start: 20151028, end: 20170621

REACTIONS (10)
  - Influenza like illness [Recovered/Resolved]
  - Accident [Recovered/Resolved]
  - Depression [Recovered/Resolved]
  - Injection site reaction [Not Recovered/Not Resolved]
  - Injury [Recovered/Resolved]
  - Feeling abnormal [Recovered/Resolved]
  - Injection site pain [Unknown]
  - Contusion [Unknown]
  - Skin laceration [Recovered/Resolved]
  - Headache [Recovered/Resolved]

NARRATIVE: CASE EVENT DATE: 20151030
